FAERS Safety Report 7005726-1 (Version None)
Quarter: 2010Q3

REPORT INFORMATION
  Report Type: 
  Country: None (occurrence: None)
  Receive Date: 20100917
  Receipt Date: 20100701
  Transmission Date: 20110219
  Serious: Yes (Life-Threatening, Hospitalization, Other)
  Sender: FDA-Public Use
  Company Number: DSA_42834_2010

PATIENT
  Sex: Female

DRUGS (2)
  1. XENAZINE [Suspect]
     Indication: HUNTINGTON'S DISEASE
     Dosage: (25 MG BID ORAL)
     Route: 048
     Dates: start: 20090501, end: 20100219
  2. CELEXA [Suspect]
     Indication: PRODUCT USED FOR UNKNOWN INDICATION
     Dosage: (DF)

REACTIONS (2)
  - DEPRESSION [None]
  - SUICIDE ATTEMPT [None]
